FAERS Safety Report 25287830 (Version 1)
Quarter: 2025Q2

REPORT INFORMATION
  Report Type: Spontaneous
  Country: US (occurrence: None)
  Receive Date: 20250509
  Receipt Date: 20250509
  Transmission Date: 20250716
  Serious: Yes (Hospitalization)
  Sender: FDA-CTU
  Company Number: None

PATIENT
  Sex: Female

DRUGS (7)
  1. BOTOX [Suspect]
     Active Substance: ONABOTULINUMTOXINA
     Route: 030
  2. CALCIUM/MAG [Concomitant]
  3. DEPAKOTE [Concomitant]
     Active Substance: DIVALPROEX SODIUM
  4. MULTIVITAMI [Concomitant]
  5. OCREVUS [Concomitant]
     Active Substance: OCRELIZUMAB
  6. VIMPAT [Concomitant]
     Active Substance: LACOSAMIDE
  7. XIFAN [Concomitant]

REACTIONS (1)
  - Parosmia [None]
